FAERS Safety Report 4270029-5 (Version None)
Quarter: 2004Q1

REPORT INFORMATION
  Report Type: 
  Country: None (occurrence: None)
  Receive Date: 20040113
  Receipt Date: 20040113
  Transmission Date: 20041129
  Serious: Yes (Other)
  Sender: FDA-Public Use
  Company Number: None

PATIENT
  Sex: Male

DRUGS (1)
  1. MERREM I.V. [Suspect]
     Dosage: Q 8 HR VIA IV
     Route: 042
     Dates: start: 20040109, end: 20040110

REACTIONS (1)
  - RASH [None]
